FAERS Safety Report 21667573 (Version 1)
Quarter: 2022Q4

REPORT INFORMATION
  Report Type: Spontaneous
  Country: US (occurrence: US)
  Receive Date: 20221201
  Receipt Date: 20221201
  Transmission Date: 20230113
  Serious: Yes (Other)
  Sender: FDA-Public Use
  Company Number: US-PFIZER INC-PV202200112905

PATIENT
  Age: 64 Year
  Sex: Male

DRUGS (1)
  1. CIBINQO [Suspect]
     Active Substance: ABROCITINIB
     Dosage: 1 DF, DAILY
     Route: 048

REACTIONS (2)
  - Atrial fibrillation [Unknown]
  - Blood pressure abnormal [Unknown]
